FAERS Safety Report 8257054-4 (Version None)
Quarter: 2012Q2

REPORT INFORMATION
  Report Type: 
  Country: None (occurrence: None)
  Receive Date: 20120403
  Receipt Date: 20120307
  Transmission Date: 20120825
  Serious: Yes (Other)
  Sender: FDA-Public Use
  Company Number: JP-GLAXOSMITHKLINE-B0787918A

PATIENT
  Sex: Female

DRUGS (5)
  1. LAMICTAL [Suspect]
     Indication: PRODUCT USED FOR UNKNOWN INDICATION
     Dosage: 50MG PER DAY
     Route: 048
     Dates: start: 20120216, end: 20120306
  2. WARFARIN SODIUM [Concomitant]
     Route: 048
  3. TENORMIN [Concomitant]
     Dosage: 25MG PER DAY
     Route: 048
  4. BLOSTAR M [Concomitant]
     Dosage: 10MG PER DAY
     Route: 048
  5. TEGRETOL [Concomitant]
     Dosage: 200MG PER DAY
     Route: 048

REACTIONS (3)
  - RASH [None]
  - GRANULOCYTE COUNT DECREASED [None]
  - PIGMENTATION DISORDER [None]
